FAERS Safety Report 6084216-7 (Version None)
Quarter: 2009Q1

REPORT INFORMATION
  Report Type: 
  Country: None (occurrence: None)
  Receive Date: 20090219
  Receipt Date: 20090211
  Transmission Date: 20090719
  Serious: Yes (Other)
  Sender: FDA-Public Use
  Company Number: BR-JNJFOC-20090203407

PATIENT
  Age: 67 Year
  Sex: Female
  Weight: 47 kg

DRUGS (6)
  1. REMINYL [Suspect]
     Indication: DEMENTIA ALZHEIMER'S TYPE
  2. PANTOPRAZOLE [Concomitant]
  3. LACTULONA [Concomitant]
  4. AKINETON [Concomitant]
  5. LIORESAL [Concomitant]
  6. PROLOPA [Concomitant]

REACTIONS (2)
  - DRUG PRESCRIBING ERROR [None]
  - NO ADVERSE EVENT [None]
